FAERS Safety Report 13100385 (Version 1)
Quarter: 2017Q1

REPORT INFORMATION
  Report Type: Spontaneous
  Country: US (occurrence: US)
  Receive Date: 20170110
  Receipt Date: 20170110
  Transmission Date: 20170428
  Serious: Yes (Other)
  Sender: FDA-Public Use
  Company Number: US-ELI_LILLY_AND_COMPANY-US201701001651

PATIENT
  Age: 14 Year
  Sex: Male

DRUGS (6)
  1. STRATTERA [Suspect]
     Active Substance: ATOMOXETINE HYDROCHLORIDE
     Dosage: 40 MG, QD
     Route: 065
  2. STRATTERA [Suspect]
     Active Substance: ATOMOXETINE HYDROCHLORIDE
     Dosage: 60 MG, UNKNOWN
     Route: 065
     Dates: end: 20170104
  3. STRATTERA [Suspect]
     Active Substance: ATOMOXETINE HYDROCHLORIDE
     Dosage: 25 MG, QD
     Route: 065
  4. SERTRALINE [Concomitant]
     Active Substance: SERTRALINE HYDROCHLORIDE
     Indication: PRODUCT USED FOR UNKNOWN INDICATION
     Dosage: 100 MG, UNK
     Route: 065
  5. FLUPHENAZINE [Concomitant]
     Active Substance: FLUPHENAZINE
     Indication: PRODUCT USED FOR UNKNOWN INDICATION
     Dosage: UNK, UNKNOWN
     Route: 065
  6. STRATTERA [Suspect]
     Active Substance: ATOMOXETINE HYDROCHLORIDE
     Indication: ATTENTION DEFICIT/HYPERACTIVITY DISORDER
     Dosage: 18 MG, QD
     Route: 065
     Dates: start: 20161206

REACTIONS (12)
  - Visual impairment [Unknown]
  - Confusional state [Unknown]
  - Disorientation [Unknown]
  - Hiccups [Unknown]
  - Mood swings [Unknown]
  - Feeling abnormal [Unknown]
  - Emotional distress [Unknown]
  - Dysstasia [Unknown]
  - Stress [Unknown]
  - Anxiety [Unknown]
  - Decreased appetite [Unknown]
  - Suicidal ideation [Unknown]

NARRATIVE: CASE EVENT DATE: 20161206
